FAERS Safety Report 4599135-2 (Version None)
Quarter: 2005Q1

REPORT INFORMATION
  Report Type: 
  Country: None (occurrence: None)
  Receive Date: 20050302
  Receipt Date: 20050217
  Transmission Date: 20050727
  Serious: Yes (Life-Threatening)
  Sender: FDA-Public Use
  Company Number: MAG-2005-0000339

PATIENT
  Age: 54 Year
  Sex: Male
  Weight: 63 kg

DRUGS (2)
  1. POVIDONE IODINE [Suspect]
     Dosage: TOPICAL
     Route: 061
     Dates: start: 20041215
  2. ADCON () [Suspect]
     Indication: SPINAL LAMINECTOMY
     Dosage: INTRAVENOUS
     Route: 042
     Dates: start: 20041215

REACTIONS (2)
  - ANAPHYLACTOID SHOCK [None]
  - ANGIONEUROTIC OEDEMA [None]
